FAERS Safety Report 9517803 (Version 8)
Quarter: 2014Q2

REPORT INFORMATION
  Report Type: Spontaneous
  Country: US (occurrence: US)
  Receive Date: 20130912
  Receipt Date: 20140526
  Transmission Date: 20141212
  Serious: Yes (Life-Threatening, Hospitalization)
  Sender: FDA-Public Use
  Company Number: US-JNJFOC-20130905527

PATIENT
  Age: 36 Year
  Sex: Female
  Weight: 90.72 kg

DRUGS (4)
  1. TYLENOL EXTRA STRENGTH [Suspect]
     Indication: PYREXIA
     Dosage: AS NEEDED
     Route: 065
  2. TYLENOL EXTRA STRENGTH [Suspect]
     Indication: INFLUENZA
     Dosage: AS NEEDED
     Route: 065
  3. TYLENOL PM [Suspect]
     Route: 065
  4. TYLENOL PM [Suspect]
     Indication: SLEEP DISORDER THERAPY
     Dosage: AS NEEDED
     Route: 065

REACTIONS (5)
  - Acute hepatic failure [Recovered/Resolved]
  - Renal failure acute [Recovered/Resolved]
  - Acute pulmonary oedema [Recovering/Resolving]
  - Hypertension [Recovered/Resolved]
  - Anaemia [Recovering/Resolving]
